FAERS Safety Report 10024545 (Version 1)
Quarter: 2014Q1

REPORT INFORMATION
  Report Type: Spontaneous
  Country: US (occurrence: None)
  Receive Date: 20140319
  Receipt Date: 20140319
  Transmission Date: 20141002
  Serious: Yes (Other)
  Sender: FDA-Public Use
  Company Number: None

PATIENT
  Age: 55 Year
  Sex: Male
  Weight: 67 kg

DRUGS (1)
  1. DULOXETINE 60 MG TEVA [Suspect]
     Indication: ANXIETY
     Route: 048
     Dates: start: 201401, end: 201403

REACTIONS (2)
  - Anger [None]
  - Mental status changes [None]
